FAERS Safety Report 7576907-3 (Version None)
Quarter: 2011Q2

REPORT INFORMATION
  Report Type: 
  Country: None (occurrence: None)
  Receive Date: 20110624
  Receipt Date: 20110624
  Transmission Date: 20111010
  Serious: No
  Sender: FDA-Public Use
  Company Number: None

PATIENT
  Age: 64 Year
  Sex: Female
  Weight: 120.8382 kg

DRUGS (2)
  1. HUMIRA [Suspect]
     Indication: PSORIASIS
     Dosage: 40MG/0.8ML 2XMONTH ID 5 INJECTIONS IN ALL
     Route: 023
  2. HUMIRA [Suspect]

REACTIONS (9)
  - PAIN [None]
  - OEDEMA PERIPHERAL [None]
  - NERVE INJURY [None]
  - DYSGRAPHIA [None]
  - GRIP STRENGTH DECREASED [None]
  - MUSCLE SPASMS [None]
  - BURNS SECOND DEGREE [None]
  - ACTIVITIES OF DAILY LIVING IMPAIRED [None]
  - FATIGUE [None]
